FAERS Safety Report 9418723 (Version 4)
Quarter: 2013Q4

REPORT INFORMATION
  Report Type: Spontaneous
  Country: PT (occurrence: PT)
  Receive Date: 20130725
  Receipt Date: 20131023
  Transmission Date: 20140711
  Serious: Yes (Hospitalization)
  Sender: FDA-Public Use
  Company Number: PT-ROCHE-1251036

PATIENT
  Age: 60 Year
  Sex: Female
  Weight: 70 kg

DRUGS (6)
  1. ROACTEMRA [Suspect]
     Indication: RHEUMATOID ARTHRITIS
     Route: 042
     Dates: start: 20130626, end: 20130626
  2. LEPICORTINOLO [Concomitant]
     Indication: RHEUMATOID ARTHRITIS
     Route: 048
  3. LEDERTREXATE [Concomitant]
     Indication: RHEUMATOID ARTHRITIS
     Route: 048
  4. BLOPRESS [Concomitant]
     Indication: HYPERTENSION
     Dosage: STARTED BEFORE 2012.
     Route: 048
  5. ISONIAZIDA [Concomitant]
     Indication: LATENT TUBERCULOSIS
     Route: 048
     Dates: start: 201304
  6. PIRIDOXINA [Concomitant]
     Indication: LATENT TUBERCULOSIS
     Route: 048
     Dates: start: 201304

REACTIONS (2)
  - Cellulitis [Recovered/Resolved with Sequelae]
  - Hypercalcaemia [Recovering/Resolving]
